FAERS Safety Report 5034521-8 (Version None)
Quarter: 2006Q2

REPORT INFORMATION
  Report Type: 
  Country: None (occurrence: None)
  Receive Date: 20060623
  Receipt Date: 20060623
  Transmission Date: 20061013
  Serious: Yes (Disabling)
  Sender: FDA-Public Use
  Company Number: None

PATIENT
  Age: 80 Year
  Sex: Male
  Weight: 85.2762 kg

DRUGS (7)
  1. VELCADE [Suspect]
     Indication: MANTLE CELL LYMPHOMA
     Dosage: 1.3MG/M2 DAYS 1, 4, 8, 11 IV  3 DOSES
     Route: 042
     Dates: start: 20060612, end: 20060619
  2. PERCOCET [Concomitant]
  3. LIPITOR [Concomitant]
  4. ALLEGRA [Concomitant]
  5. COREG [Concomitant]
  6. ASPIRIN [Concomitant]
  7. ZOFRAN [Concomitant]

REACTIONS (1)
  - HYPONATRAEMIA [None]
